FAERS Safety Report 24269424 (Version 1)
Quarter: 2024Q3

REPORT INFORMATION
  Report Type: Spontaneous
  Country: BR (occurrence: None)
  Receive Date: 20240830
  Receipt Date: 20240830
  Transmission Date: 20241016
  Serious: Yes (Other)
  Sender: ASTRAZENECA
  Company Number: 2024A196397

PATIENT
  Age: 3178 Week
  Sex: Male
  Weight: 111 kg

DRUGS (2)
  1. DAPAGLIFLOZIN [Suspect]
     Active Substance: DAPAGLIFLOZIN
     Indication: Metabolic syndrome
     Route: 048
     Dates: start: 20240611, end: 20240822
  2. METOPROLOL SUCCINATE [Suspect]
     Active Substance: METOPROLOL SUCCINATE
     Route: 048

REACTIONS (11)
  - Genital discomfort [Unknown]
  - Genital burning sensation [Unknown]
  - Scab [Unknown]
  - Genital erythema [Unknown]
  - Skin exfoliation [Unknown]
  - Genital infection fungal [Unknown]
  - Obesity [Unknown]
  - Hypertension [Unknown]
  - Cardiac disorder [Unknown]
  - Henoch-Schonlein purpura [Unknown]
  - Metabolic syndrome [Unknown]

NARRATIVE: CASE EVENT DATE: 20240701
